FAERS Safety Report 4599554-4 (Version None)
Quarter: 2005Q1

REPORT INFORMATION
  Report Type: 
  Country: None (occurrence: None)
  Receive Date: 20050307
  Receipt Date: 20050224
  Transmission Date: 20050727
  Serious: Yes (Hospitalization)
  Sender: FDA-Public Use
  Company Number: 200510692JP

PATIENT
  Age: 42 Year
  Sex: Male

DRUGS (1)
  1. LASIX [Suspect]
     Indication: OEDEMA PERIPHERAL
     Route: 048

REACTIONS (2)
  - HYPOKALAEMIA [None]
  - RHABDOMYOLYSIS [None]
